FAERS Safety Report 6093949-8 (Version None)
Quarter: 2009Q1

REPORT INFORMATION
  Report Type: 
  Country: None (occurrence: None)
  Receive Date: 20090226
  Receipt Date: 20090220
  Transmission Date: 20090719
  Serious: Yes (Hospitalization)
  Sender: FDA-Public Use
  Company Number: A0770311A

PATIENT
  Age: 58 Year
  Sex: Male
  Weight: 86.8 kg

DRUGS (3)
  1. AVANDIA [Suspect]
     Indication: DIABETES MELLITUS
     Dosage: 2MG TWICE PER DAY
     Route: 048
     Dates: start: 20060301, end: 20060619
  2. AVANDAMET [Concomitant]
     Indication: DIABETES MELLITUS
     Route: 048
     Dates: start: 20030601, end: 20051201
  3. PAXIL [Concomitant]

REACTIONS (2)
  - CARDIAC DISORDER [None]
  - MYOCARDIAL INFARCTION [None]
